FAERS Safety Report 9729639 (Version 2)
Quarter: 2013Q4

REPORT INFORMATION
  Report Type: Spontaneous
  Country: US (occurrence: US)
  Receive Date: 20131204
  Receipt Date: 20131204
  Transmission Date: 20140711
  Serious: No
  Sender: FDA-Public Use
  Company Number: US-PURDUE-USA-2013-0108334

PATIENT
  Sex: Male

DRUGS (2)
  1. INTERMEZZO [Suspect]
     Indication: TERMINAL INSOMNIA
     Dosage: 1.75 MG, UNK
     Route: 060
     Dates: start: 20131101
  2. ZOLPIDEM TARTRATE [Concomitant]
     Indication: PRODUCT USED FOR UNKNOWN INDICATION
     Dosage: BEGINNING OF THE NIGHT

REACTIONS (5)
  - Hyperchlorhydria [Unknown]
  - Gastrooesophageal reflux disease [Unknown]
  - Dyspepsia [Unknown]
  - Incorrect dose administered [Unknown]
  - Drug ineffective [Unknown]
